FAERS Safety Report 21378032 (Version 1)
Quarter: 2022Q3

REPORT INFORMATION
  Report Type: Spontaneous
  Country: EG (occurrence: EG)
  Receive Date: 20220926
  Receipt Date: 20220926
  Transmission Date: 20221027
  Serious: Yes (Death, Other)
  Sender: FDA-Public Use
  Company Number: EG-BoehringerIngelheim-2022-BI-194030

PATIENT
  Age: 77 Year
  Sex: Male

DRUGS (2)
  1. PRAXBIND [Suspect]
     Active Substance: IDARUCIZUMAB
     Indication: Procoagulant therapy
  2. LOVENOX (ENOXAPARIN) [Concomitant]
     Indication: Product used for unknown indication

REACTIONS (2)
  - Cardiogenic shock [Fatal]
  - Cardiac arrest [Fatal]
